FAERS Safety Report 22107092 (Version 1)
Quarter: 2023Q1

REPORT INFORMATION
  Report Type: Spontaneous
  Country: US (occurrence: US)
  Receive Date: 20230317
  Receipt Date: 20230317
  Transmission Date: 20230417
  Serious: Yes (Hospitalization, Other)
  Sender: FDA-Public Use
  Company Number: US-SA-2023SA081043

PATIENT
  Age: 62 Year
  Sex: Female

DRUGS (2)
  1. LIDOCAINE [Suspect]
     Active Substance: LIDOCAINE
     Indication: Skin cosmetic procedure
     Dosage: UNK
     Route: 058
  2. EPINEPHRINE [Suspect]
     Active Substance: EPINEPHRINE
     Indication: Skin cosmetic procedure
     Dosage: UNK

REACTIONS (3)
  - Stress cardiomyopathy [Recovering/Resolving]
  - Supraventricular tachycardia [Recovering/Resolving]
  - Ventricular tachycardia [Recovering/Resolving]
